FAERS Safety Report 11832103 (Version 1)
Quarter: 2015Q4

REPORT INFORMATION
  Report Type: Spontaneous
  Country: US (occurrence: None)
  Receive Date: 20151211
  Receipt Date: 20151211
  Transmission Date: 20160305
  Serious: Yes (Life-Threatening, Disabling)
  Sender: FDA-Public Use
  Company Number: None

PATIENT
  Age: 33 Year
  Sex: Male
  Weight: 113.4 kg

DRUGS (12)
  1. PAXIL [Concomitant]
     Active Substance: PAROXETINE HYDROCHLORIDE
  2. ATIVAN [Concomitant]
     Active Substance: LORAZEPAM
  3. VALIUM [Concomitant]
     Active Substance: DIAZEPAM
  4. BISOPROLOL [Concomitant]
     Active Substance: BISOPROLOL
  5. VITAMIN D3 [Concomitant]
     Active Substance: CHOLECALCIFEROL
  6. MAGNESIUM OXIDE. [Concomitant]
     Active Substance: MAGNESIUM OXIDE
  7. BISOPROLOL [Suspect]
     Active Substance: BISOPROLOL
     Indication: POSTURAL ORTHOSTATIC TACHYCARDIA SYNDROME
     Dosage: 1/4 PILL PER DAY?ONCE DAILY?TAKEN BY MOUTH
     Route: 048
     Dates: start: 20150801, end: 20151209
  8. MULTIVITAMIN [Concomitant]
     Active Substance: VITAMINS
  9. SEROQUEL [Concomitant]
     Active Substance: QUETIAPINE FUMARATE
  10. BISOPROLOL [Suspect]
     Active Substance: BISOPROLOL
     Indication: AUTONOMIC NERVOUS SYSTEM IMBALANCE
     Dosage: 1/4 PILL PER DAY?ONCE DAILY?TAKEN BY MOUTH
     Route: 048
     Dates: start: 20150801, end: 20151209
  11. CINNULIN PF (WATER CINNAMON EXTRACT) [Concomitant]
  12. FISH OIL [Concomitant]
     Active Substance: FISH OIL

REACTIONS (5)
  - Chest pain [None]
  - Product commingling [None]
  - Blood pressure increased [None]
  - Tachycardia [None]
  - Dyspnoea [None]

NARRATIVE: CASE EVENT DATE: 20151208
